FAERS Safety Report 21990015 (Version 1)
Quarter: 2023Q1

REPORT INFORMATION
  Report Type: Spontaneous
  Country: US (occurrence: None)
  Receive Date: 20230213
  Receipt Date: 20230213
  Transmission Date: 20230418
  Serious: Yes (Disabling)
  Sender: FDA-Public Use
  Company Number: None

PATIENT
  Age: 27 Year
  Sex: Female
  Weight: 84.6 kg

DRUGS (2)
  1. HERBALS\TETRAHYDROCANNABINOL MIXED [Suspect]
     Active Substance: HERBALS\TETRAHYDROCANNABINOL MIXED
     Indication: Product used for unknown indication
  2. Trazodrone [Concomitant]

REACTIONS (16)
  - Hypoaesthesia [None]
  - Hypoaesthesia [None]
  - Dyspnoea [None]
  - Vomiting [None]
  - Retching [None]
  - Pharyngeal hypoaesthesia [None]
  - Tremor [None]
  - Muscle spasms [None]
  - Impaired driving ability [None]
  - Impaired work ability [None]
  - Dizziness [None]
  - Loss of control of legs [None]
  - Peripheral swelling [None]
  - Angiopathy [None]
  - Swelling [None]
  - Feeling abnormal [None]

NARRATIVE: CASE EVENT DATE: 20221106
